FAERS Safety Report 8419450-1 (Version None)
Quarter: 2012Q2

REPORT INFORMATION
  Report Type: 
  Country: None (occurrence: None)
  Receive Date: 20120607
  Receipt Date: 20120531
  Transmission Date: 20120825
  Serious: Yes (Other)
  Sender: FDA-Public Use
  Company Number: JP-GLAXOSMITHKLINE-B0803928A

PATIENT
  Sex: Female
  Weight: 61 kg

DRUGS (4)
  1. TRASTUZUMAB [Concomitant]
     Dosage: 489MG PER DAY
     Route: 042
     Dates: start: 20111220, end: 20111220
  2. TRASTUZUMAB [Concomitant]
     Dosage: 367MG TWENTY-ONE TIMES PER DAY
     Route: 042
     Dates: start: 20120110
  3. TYKERB [Suspect]
     Indication: BREAST CANCER
     Route: 048
     Dates: start: 20081216
  4. TAMOXIFEN CITRATE [Concomitant]
     Dosage: 20MG PER DAY
     Route: 048
     Dates: start: 20090630

REACTIONS (1)
  - GASTRIC CANCER [None]
